FAERS Safety Report 10050088 (Version 1)
Quarter: 2014Q1

REPORT INFORMATION
  Report Type: Spontaneous
  Country: US (occurrence: None)
  Receive Date: 20140331
  Receipt Date: 20140331
  Transmission Date: 20141002
  Serious: Yes (Hospitalization)
  Sender: FDA-Public Use
  Company Number: None

PATIENT
  Age: 46 Year
  Sex: Female

DRUGS (4)
  1. ENBREL [Suspect]
     Route: 058
     Dates: start: 20130404
  2. TOPAMAX [Concomitant]
  3. MOGASTROL [Concomitant]
  4. PLAVIX [Concomitant]

REACTIONS (1)
  - Pulmonary embolism [None]
